FAERS Safety Report 4626770-5 (Version None)
Quarter: 2005Q2

REPORT INFORMATION
  Report Type: 
  Country: None (occurrence: None)
  Receive Date: 20050405
  Receipt Date: 20050322
  Transmission Date: 20051028
  Serious: Yes (Other)
  Sender: FDA-Public Use
  Company Number: US-KINGPHARMUSA00001-K200500414

PATIENT
  Age: 63 Year
  Sex: Male
  Weight: 77 kg

DRUGS (8)
  1. SEPTRA [Suspect]
     Indication: INFECTION PROPHYLAXIS
     Dosage: 480 MG, QD
     Route: 048
     Dates: start: 20041210, end: 20041224
  2. ZYLORIC ^FAES^ [Suspect]
     Indication: PROPHYLAXIS
     Dosage: 300 MG, QD
     Route: 048
     Dates: start: 20041210, end: 20041217
  3. MITOXANTRONE [Concomitant]
     Dosage: UNK, UNK
     Dates: start: 20041210, end: 20041210
  4. CHLORAMBUCIL [Concomitant]
     Dates: start: 20041210, end: 20041220
  5. DEXAMETHASONE [Concomitant]
     Dates: start: 20041210, end: 20041215
  6. RANITIDINE HYDROCHLORIDE [Concomitant]
     Dates: start: 20041210, end: 20041217
  7. METOCLOPRAMIDE [Concomitant]
     Dates: start: 20041210, end: 20041217
  8. NOVANTRONE [Suspect]
     Indication: NEOPLASM MALIGNANT

REACTIONS (7)
  - EYE SWELLING [None]
  - LIP EXFOLIATION [None]
  - OEDEMA MUCOSAL [None]
  - ORAL CANDIDIASIS [None]
  - SKIN EXFOLIATION [None]
  - STEVENS-JOHNSON SYNDROME [None]
  - SWELLING FACE [None]
